FAERS Safety Report 6753127-3 (Version None)
Quarter: 2010Q2

REPORT INFORMATION
  Report Type: 
  Country: None (occurrence: None)
  Receive Date: 20100603
  Receipt Date: 20100527
  Transmission Date: 20101027
  Serious: Yes (Hospitalization)
  Sender: FDA-Public Use
  Company Number: ZA-PFIZER INC-2010066708

PATIENT
  Age: 40 Year
  Sex: Female

DRUGS (1)
  1. GEODON [Suspect]
     Dosage: 40 MG, UNK
     Route: 030

REACTIONS (1)
  - RESTLESS LEGS SYNDROME [None]
